FAERS Safety Report 22661708 (Version 1)
Quarter: 2023Q2

REPORT INFORMATION
  Report Type: Spontaneous
  Country: US (occurrence: US)
  Receive Date: 20230630
  Receipt Date: 20230630
  Transmission Date: 20230722
  Serious: Yes (Other)
  Sender: FDA-Public Use
  Company Number: US-PFIZER INC-202300232781

PATIENT
  Age: 86 Year
  Sex: Male
  Weight: 88.9 kg

DRUGS (8)
  1. XELJANZ XR [Suspect]
     Active Substance: TOFACITINIB CITRATE
     Indication: Rheumatoid arthritis
     Dosage: 11 MG, ONCE DAILY
     Route: 048
  2. METOPROLOL SUCCINATE [Suspect]
     Active Substance: METOPROLOL SUCCINATE
     Dosage: 50 MG
  3. LISINOPRIL [Suspect]
     Active Substance: LISINOPRIL
     Dosage: 5 MG
  4. ROSUVASTATIN CALCIUM [Suspect]
     Active Substance: ROSUVASTATIN CALCIUM
     Dosage: 10 MG, ONCE A DAY EVER EVENING
  5. FINASTERIDE [Suspect]
     Active Substance: FINASTERIDE
     Dosage: 5 MG
  6. ASPIRIN [Suspect]
     Active Substance: ASPIRIN
     Dosage: 81 MG
     Dates: end: 202306
  7. ADVIL [Suspect]
     Active Substance: IBUPROFEN
     Dosage: 200 MG LIQUID GEL
     Dates: end: 202306
  8. OCUVITE [Suspect]
     Active Substance: VITAMINS
     Dosage: UNK

REACTIONS (2)
  - Spinal laminectomy [Not Recovered/Not Resolved]
  - Coagulopathy [Not Recovered/Not Resolved]

NARRATIVE: CASE EVENT DATE: 20230622
